FAERS Safety Report 14006718 (Version 1)
Quarter: 2017Q3

REPORT INFORMATION
  Report Type: Spontaneous
  Country: US (occurrence: US)
  Receive Date: 20170925
  Receipt Date: 20170925
  Transmission Date: 20171128
  Serious: Yes (Other)
  Sender: FDA-Public Use
  Company Number: US-AMGEN-USASP2017142713

PATIENT
  Sex: Female

DRUGS (3)
  1. FASLODEX [Suspect]
     Active Substance: FULVESTRANT
     Indication: METASTASES TO BONE
     Dosage: UNK
     Route: 065
     Dates: start: 201708
  2. IBRANCE [Suspect]
     Active Substance: PALBOCICLIB
     Indication: METASTASES TO BONE
     Dosage: UNK
     Route: 065
     Dates: start: 201708
  3. NEULASTA [Suspect]
     Active Substance: PEGFILGRASTIM
     Indication: PRODUCT USED FOR UNKNOWN INDICATION
     Dosage: UNK
     Route: 065

REACTIONS (8)
  - Diastema [Unknown]
  - Endodontic procedure [Unknown]
  - Device dislocation [Unknown]
  - Dizziness [Unknown]
  - Bone pain [Unknown]
  - Pulmonary embolism [Unknown]
  - Confusional state [Unknown]
  - Metastases to bone [Unknown]

NARRATIVE: CASE EVENT DATE: 201608
